FAERS Safety Report 5857884-X (Version None)
Quarter: 2008Q3

REPORT INFORMATION
  Report Type: 
  Country: None (occurrence: None)
  Receive Date: 20080826
  Receipt Date: 20080523
  Transmission Date: 20090109
  Serious: No
  Sender: FDA-Public Use
  Company Number: US-TEVA-169697USA

PATIENT
  Sex: Female
  Weight: 58.112 kg

DRUGS (11)
  1. AZILECT [Suspect]
     Indication: PARKINSON'S DISEASE
     Route: 048
     Dates: start: 20080307, end: 20080313
  2. AZILECT [Suspect]
     Route: 048
     Dates: start: 20080314
  3. MULTI-VITAMIN [Concomitant]
  4. FISH OIL [Concomitant]
  5. LEVOCARNITINE [Concomitant]
  6. THIOCTIC ACID [Concomitant]
  7. ASCORBIC ACID [Concomitant]
  8. UBIDECARENONE [Concomitant]
  9. ERGOCALCIFEROL [Concomitant]
  10. VITAMIN B [Concomitant]
  11. CALCIUM [Concomitant]

REACTIONS (1)
  - DRUG INEFFECTIVE [None]
